FAERS Safety Report 24720278 (Version 3)
Quarter: 2024Q4

REPORT INFORMATION
  Report Type: Report from Study
  Country: US (occurrence: US)
  Receive Date: 20241211
  Receipt Date: 20241223
  Transmission Date: 20250114
  Serious: No
  Sender: ROCHE
  Company Number: US-ROCHE-10000147545

PATIENT
  Age: 64 Year
  Sex: Male

DRUGS (8)
  1. OCREVUS [Suspect]
     Active Substance: OCRELIZUMAB
     Indication: Secondary progressive multiple sclerosis
     Dosage: 600MG/500ML, LAST DATE OF TREATMENT: 11/2/2021
     Route: 042
     Dates: start: 2020
  2. MODAFINIL [Concomitant]
     Active Substance: MODAFINIL
  3. ADDERALL [Concomitant]
     Active Substance: AMPHETAMINE ASPARTATE\AMPHETAMINE SULFATE\DEXTROAMPHETAMINE SACCHARATE\DEXTROAMPHETAMINE SULFATE
  4. LINZESS [Concomitant]
     Active Substance: LINACLOTIDE
  5. LISINOPRIL [Concomitant]
     Active Substance: LISINOPRIL
  6. ZETIA [Concomitant]
     Active Substance: EZETIMIBE
  7. GABAPENTIN [Concomitant]
     Active Substance: GABAPENTIN
  8. CYCLOBENZAPRINE [Concomitant]
     Active Substance: CYCLOBENZAPRINE

REACTIONS (12)
  - Cognitive disorder [Not Recovered/Not Resolved]
  - Intervertebral disc degeneration [Not Recovered/Not Resolved]
  - JC polyomavirus test positive [Not Recovered/Not Resolved]
  - Fall [Unknown]
  - Meniscus injury [Recovered/Resolved]
  - Tremor [Not Recovered/Not Resolved]
  - Urinary tract infection [Unknown]
  - Prostate infection [Unknown]
  - Stress [Unknown]
  - Chest discomfort [Unknown]
  - Dizziness [Recovered/Resolved]
  - Balance disorder [Not Recovered/Not Resolved]

NARRATIVE: CASE EVENT DATE: 20220101
